FAERS Safety Report 4537660-0 (Version None)
Quarter: 2004Q4

REPORT INFORMATION
  Report Type: 
  Country: None (occurrence: None)
  Receive Date: 20041215
  Receipt Date: 20040526
  Transmission Date: 20050328
  Serious: Yes (Hospitalization, Other)
  Sender: FDA-Public Use
  Company Number: 2004009328

PATIENT
  Age: 42 Year
  Sex: Female
  Weight: 73.0291 kg

DRUGS (1)
  1. TROVAN [Suspect]
     Indication: RESPIRATORY TRACT INFECTION
     Dosage: 200 MG (1 IN 1 D)
     Dates: start: 19990119, end: 19990201

REACTIONS (22)
  - ABDOMINAL PAIN [None]
  - ARTHRALGIA [None]
  - ASTHENIA [None]
  - BLOOD SODIUM DECREASED [None]
  - BLOOD SODIUM INCREASED [None]
  - BLOOD URINE [None]
  - COUGH [None]
  - EPSTEIN-BARR VIRUS ANTIGEN POSITIVE [None]
  - FATIGUE [None]
  - GALLBLADDER DISORDER [None]
  - HAEMOGLOBIN INCREASED [None]
  - HEPATIC FAILURE [None]
  - HEPATITIS [None]
  - HEPATITIS ACUTE [None]
  - INTERNATIONAL NORMALISED RATIO DECREASED [None]
  - KETONURIA [None]
  - LIVER TRANSPLANT [None]
  - MALAISE [None]
  - RED BLOOD CELLS URINE POSITIVE [None]
  - STREPTOCOCCAL SEROLOGY POSITIVE [None]
  - VERY LOW DENSITY LIPOPROTEIN DECREASED [None]
  - WHITE BLOOD CELL COUNT INCREASED [None]
